FAERS Safety Report 17823646 (Version 1)
Quarter: 2020Q2

REPORT INFORMATION
  Report Type: Spontaneous
  Country: US (occurrence: US)
  Receive Date: 20200522
  Receipt Date: 20200522
  Transmission Date: 20200714
  Serious: No
  Sender: FDA-Public Use
  Company Number: None

PATIENT
  Sex: Female

DRUGS (1)
  1. HUMIRA [Suspect]
     Active Substance: ADALIMUMAB
     Indication: TEMPORAL ARTERITIS
     Route: 058
     Dates: start: 20200325

REACTIONS (4)
  - Feeling hot [None]
  - Contusion [None]
  - Vein discolouration [None]
  - Tenderness [None]
